FAERS Safety Report 5311953-1 (Version None)
Quarter: 2007Q2

REPORT INFORMATION
  Report Type: 
  Country: None (occurrence: None)
  Receive Date: 20070430
  Receipt Date: 20060619
  Transmission Date: 20071010
  Serious: No
  Sender: FDA-Public Use
  Company Number: 2006UW13015

PATIENT
  Age: 53 Year
  Sex: Female
  Weight: 62.6 kg

DRUGS (4)
  1. NEXIUM [Suspect]
     Dosage: LAST 3-4 MONTHS
  2. FOSAMAX [Suspect]
  3. ZOCOR [Concomitant]
  4. VITAMINS [Concomitant]

REACTIONS (1)
  - SENSATION OF FOREIGN BODY [None]
